FAERS Safety Report 11877242 (Version 4)
Quarter: 2017Q2

REPORT INFORMATION
  Report Type: Report from Study
  Country: US (occurrence: US)
  Receive Date: 20151229
  Receipt Date: 20170420
  Transmission Date: 20170829
  Serious: Yes (Hospitalization)
  Sender: FDA-Public Use
  Company Number: US-ACTELION-A-NJ2015-129058

PATIENT
  Age: 12 Year
  Sex: Female

DRUGS (3)
  1. ZAVESCA [Suspect]
     Active Substance: MIGLUSTAT
     Dosage: 100 MG, BID
     Route: 051
  2. CALCIUM [Concomitant]
     Active Substance: CALCIUM
     Dosage: 1 DOSE AS DIRECTED
     Dates: start: 20100927
  3. ZAVESCA [Suspect]
     Active Substance: MIGLUSTAT
     Indication: GAUCHER^S DISEASE
     Dosage: 100 MG, BID
     Route: 048
     Dates: start: 20101130

REACTIONS (2)
  - Flatulence [Unknown]
  - Pneumonia [Unknown]
